FAERS Safety Report 19043426 (Version 2)
Quarter: 2021Q2

REPORT INFORMATION
  Report Type: Spontaneous
  Country: US (occurrence: US)
  Receive Date: 20210323
  Receipt Date: 20210426
  Transmission Date: 20210717
  Serious: Yes (Other)
  Sender: FDA-Public Use
  Company Number: US-PFIZER INC-2021292863

PATIENT
  Age: 48 Year
  Sex: Female
  Weight: 53.52 kg

DRUGS (4)
  1. ZYRTEC [Concomitant]
     Active Substance: CETIRIZINE HYDROCHLORIDE
  2. XANAX [Suspect]
     Active Substance: ALPRAZOLAM
     Indication: ANXIETY
  3. XANAX [Suspect]
     Active Substance: ALPRAZOLAM
     Indication: DYSPNOEA
     Dosage: UNK, AS NEEDED (1?2 BID PRN)
     Dates: start: 20210311
  4. XANAX [Suspect]
     Active Substance: ALPRAZOLAM
     Indication: PANIC ATTACK
     Dosage: 1 MG
     Dates: start: 20210311

REACTIONS (5)
  - Dyspnoea [Unknown]
  - Cough [Unknown]
  - Hypoaesthesia [Unknown]
  - Fall [Unknown]
  - Dizziness [Not Recovered/Not Resolved]

NARRATIVE: CASE EVENT DATE: 20210312
